FAERS Safety Report 5435071-7 (Version None)
Quarter: 2007Q3

REPORT INFORMATION
  Report Type: 
  Country: None (occurrence: None)
  Receive Date: 20070828
  Receipt Date: 20070828
  Transmission Date: 20080115
  Serious: No
  Sender: FDA-Public Use
  Company Number: None

PATIENT
  Age: 27 Year
  Sex: Female
  Weight: 56.6996 kg

DRUGS (1)
  1. MEFLOQUINE [Suspect]
     Dosage: 1 TABLET ONCE A WEEK PO
     Route: 048
     Dates: start: 20070804, end: 20070804

REACTIONS (2)
  - RASH PRURITIC [None]
  - URTICARIA [None]
